FAERS Safety Report 4579921-5 (Version None)
Quarter: 2005Q1

REPORT INFORMATION
  Report Type: 
  Country: None (occurrence: None)
  Receive Date: 20050211
  Receipt Date: 20050211
  Transmission Date: 20050727
  Serious: Yes (Death, Life-Threatening, Hospitalization)
  Sender: FDA-Public Use
  Company Number: None

PATIENT
  Age: 26 Year
  Sex: Male
  Weight: 63.5036 kg

DRUGS (2)
  1. KETEK [Suspect]
     Indication: SINUSITIS
     Dosage: 400 MG PO BID
     Route: 048
  2. TYLENOL (CAPLET) [Concomitant]

REACTIONS (11)
  - ACIDOSIS [None]
  - ARRHYTHMIA [None]
  - DIALYSIS [None]
  - DRUG TOXICITY [None]
  - HAEMATEMESIS [None]
  - HEPATIC FAILURE [None]
  - HEPATIC NECROSIS [None]
  - IMMUNE SYSTEM DISORDER [None]
  - INFLAMMATION [None]
  - RENAL FAILURE [None]
  - RESPIRATORY FAILURE [None]
